FAERS Safety Report 6635316-1 (Version None)
Quarter: 2010Q1

REPORT INFORMATION
  Report Type: 
  Country: None (occurrence: None)
  Receive Date: 20100315
  Receipt Date: 20100310
  Transmission Date: 20100710
  Serious: No
  Sender: FDA-Public Use
  Company Number: FR-BRISTOL-MYERS SQUIBB COMPANY-14974653

PATIENT
  Age: 62 Year
  Sex: Male

DRUGS (3)
  1. ABATACEPT [Suspect]
     Indication: RHEUMATOID ARTHRITIS
     Route: 058
     Dates: start: 20090311, end: 20100210
  2. METHOTREXATE [Suspect]
     Indication: RHEUMATOID ARTHRITIS
     Dates: start: 20080111, end: 20100120
  3. STAGID [Concomitant]
     Dosage: 1 DF=700 UNITS NOT SPECIFIED
     Dates: start: 20091201

REACTIONS (1)
  - HEPATIC ENZYME INCREASED [None]
